FAERS Safety Report 15358012 (Version 2)
Quarter: 2018Q4

REPORT INFORMATION
  Report Type: Spontaneous
  Country: GB (occurrence: GB)
  Receive Date: 20180906
  Receipt Date: 20181001
  Transmission Date: 20190204
  Serious: Yes (Other)
  Sender: FDA-Public Use
  Company Number: PHHY2018GB091322

PATIENT
  Age: 64 Year
  Sex: Female

DRUGS (2)
  1. ESTRADIOL. [Suspect]
     Active Substance: ESTRADIOL
     Indication: PRODUCT USED FOR UNKNOWN INDICATION
     Dosage: 1 PUMP DAILY (0.75 MG PUMP PACK)(1 DOSAGE FORMS,1 IN 1 D)
     Route: 061
     Dates: start: 201805, end: 20180819
  2. ELLESTE-SOLO [Concomitant]
     Indication: PRODUCT USED FOR UNKNOWN INDICATION
     Route: 065

REACTIONS (3)
  - Breast swelling [Not Recovered/Not Resolved]
  - Erythema multiforme [Not Recovered/Not Resolved]
  - Weight increased [Not Recovered/Not Resolved]

NARRATIVE: CASE EVENT DATE: 201808
